FAERS Safety Report 6401257-8 (Version None)
Quarter: 2009Q4

REPORT INFORMATION
  Report Type: 
  Country: None (occurrence: None)
  Receive Date: 20091015
  Receipt Date: 20091009
  Transmission Date: 20100525
  Serious: Yes (Hospitalization)
  Sender: FDA-Public Use
  Company Number: US-JNJFOC-20090101880

PATIENT
  Sex: Female

DRUGS (4)
  1. DURAGESIC-100 [Suspect]
     Dosage: USED 50UG/HR AND TWO 100UG/HR PATCHES
     Route: 062
  2. DURAGESIC-100 [Suspect]
     Route: 062
  3. DURAGESIC-100 [Suspect]
     Indication: ARTHRALGIA
     Dosage: 50UG/HR PLUS TWO 100UG/HR PATCHES
     Route: 062
  4. DILAUDIO [Concomitant]
     Indication: PAIN

REACTIONS (5)
  - ARRHYTHMIA [None]
  - ARTHROPATHY [None]
  - INAPPROPRIATE SCHEDULE OF DRUG ADMINISTRATION [None]
  - NAUSEA [None]
  - PAIN [None]
